FAERS Safety Report 4929647-0 (Version None)
Quarter: 2006Q1

REPORT INFORMATION
  Report Type: 
  Country: None (occurrence: None)
  Receive Date: 20060223
  Receipt Date: 20060213
  Transmission Date: 20060701
  Serious: Yes (Other)
  Sender: FDA-Public Use
  Company Number: HQWYE888317FEB06

PATIENT
  Age: 70 Year
  Sex: Male
  Weight: 72.64 kg

DRUGS (3)
  1. PROTONIX [Suspect]
     Indication: NAUSEA
     Dosage: 40 MG 1X PER 1 DAY, ORAL
     Route: 048
     Dates: start: 20060206, end: 20060213
  2. METFORMIN HCL [Concomitant]
  3. NEUPOGEN [Concomitant]

REACTIONS (2)
  - CONDITION AGGRAVATED [None]
  - THROMBOCYTOPENIA [None]
